FAERS Safety Report 19384254 (Version 2)
Quarter: 2021Q3

REPORT INFORMATION
  Report Type: Spontaneous
  Country: US (occurrence: US)
  Receive Date: 20210608
  Receipt Date: 20210701
  Transmission Date: 20211014
  Serious: No
  Sender: FDA-Public Use
  Company Number: US-SA-2021SA186033

PATIENT
  Age: 53 Year
  Sex: Female

DRUGS (1)
  1. DUPIXENT [Suspect]
     Active Substance: DUPILUMAB
     Indication: ASTHMA
     Dosage: 200 MG, QOW
     Route: 058
     Dates: start: 20210416

REACTIONS (3)
  - Dyspnoea [Unknown]
  - Wheezing [Unknown]
  - Blood glucose increased [Not Recovered/Not Resolved]

NARRATIVE: CASE EVENT DATE: 2021
